FAERS Safety Report 5873197-4 (Version None)
Quarter: 2008Q3

REPORT INFORMATION
  Report Type: 
  Country: None (occurrence: None)
  Receive Date: 20080908
  Receipt Date: 20040623
  Transmission Date: 20090109
  Serious: No
  Sender: FDA-Public Use
  Company Number: US-BAYER-200831011NA

PATIENT
  Sex: Female

DRUGS (3)
  1. AVELOX [Suspect]
     Indication: POSTOPERATIVE WOUND INFECTION
     Route: 048
     Dates: start: 20040619
  2. ANOTHER ANTIBIOTIC NOS [Suspect]
     Indication: DRUG USE FOR UNKNOWN INDICATION
     Route: 048
     Dates: start: 20040601, end: 20040601
  3. LORTAB [Concomitant]
     Indication: PAIN
     Route: 065

REACTIONS (2)
  - FUNGAL INFECTION [None]
  - URTICARIA [None]
